FAERS Safety Report 7403169-X (Version None)
Quarter: 2011Q2

REPORT INFORMATION
  Report Type: 
  Country: None (occurrence: None)
  Receive Date: 20110408
  Receipt Date: 20110405
  Transmission Date: 20111010
  Serious: Yes (Hospitalization)
  Sender: FDA-Public Use
  Company Number: CHPA2011GB04936

PATIENT
  Age: 38 Year
  Sex: Male

DRUGS (3)
  1. NICOTINE [Suspect]
     Dosage: UNK, UNK
     Route: 062
     Dates: start: 20040101
  2. TRAMADOL HCL [Concomitant]
     Indication: ABDOMINAL PAIN
     Dosage: UNK, UNK
     Route: 048
     Dates: start: 20040101
  3. ACETAMINOPHEN AND CODEINE PHOSPHATE [Concomitant]
     Indication: ABDOMINAL PAIN
     Dosage: UNK
     Route: 048
     Dates: start: 20040101, end: 20041004

REACTIONS (2)
  - WITHDRAWAL SYNDROME [None]
  - COLITIS ULCERATIVE [None]
